FAERS Safety Report 7161582-2 (Version None)
Quarter: 2010Q4

REPORT INFORMATION
  Report Type: 
  Country: None (occurrence: None)
  Receive Date: 20101215
  Receipt Date: 20101208
  Transmission Date: 20110411
  Serious: Yes (Other)
  Sender: FDA-Public Use
  Company Number: JP-JNJFOC-20101204081

PATIENT

DRUGS (11)
  1. DUROTEP MT [Suspect]
     Indication: ILL-DEFINED DISORDER
     Route: 062
  2. PARENTERAL NUTRITION [Suspect]
     Indication: ILL-DEFINED DISORDER
     Route: 048
  3. ISOTONIC SODIUM CHLORIDE SOLUTION [Suspect]
     Indication: ILL-DEFINED DISORDER
     Route: 042
  4. FAMOTIDINE [Concomitant]
     Route: 048
  5. TS-1 [Concomitant]
     Route: 048
  6. OMEPRAZOLE [Concomitant]
     Route: 042
  7. SOLDEM 3A [Concomitant]
     Route: 065
  8. BICARBONATE [Concomitant]
     Route: 065
  9. MAGNESIUM OXIDE [Concomitant]
     Route: 048
  10. THYRADIN S [Concomitant]
     Route: 048
  11. KETOPROFEN [Concomitant]
     Route: 003

REACTIONS (1)
  - BLOOD SODIUM INCREASED [None]
